FAERS Safety Report 9009374 (Version 1)
Quarter: 2013Q1

REPORT INFORMATION
  Report Type: Spontaneous
  Country: BE (occurrence: BE)
  Receive Date: 20130111
  Receipt Date: 20130111
  Transmission Date: 20140127
  Serious: Yes (Other)
  Sender: FDA-Public Use
  Company Number: BE-PFIZER INC-2013008959

PATIENT
  Sex: Female

DRUGS (1)
  1. EFEXOR EXEL [Suspect]
     Dosage: 37.5 MG, UNK
     Route: 048

REACTIONS (3)
  - Paralysis [Unknown]
  - Nausea [Unknown]
  - Arthralgia [Unknown]
